FAERS Safety Report 6186277-3 (Version None)
Quarter: 2009Q2

REPORT INFORMATION
  Report Type: 
  Country: None (occurrence: None)
  Receive Date: 20090511
  Receipt Date: 20090505
  Transmission Date: 20091009
  Serious: Yes (Other)
  Sender: FDA-Public Use
  Company Number: US-JNJFOC-20090501667

PATIENT
  Sex: Female
  Weight: 3.31 kg

DRUGS (3)
  1. TOPIRAMATE [Suspect]
     Indication: DRUG EXPOSURE DURING PREGNANCY
     Route: 064
  2. LAMICTAL [Concomitant]
     Route: 065
  3. LAMICTAL [Concomitant]
     Route: 065

REACTIONS (1)
  - INGUINAL HERNIA [None]
